FAERS Safety Report 5850783-9 (Version None)
Quarter: 2008Q3

REPORT INFORMATION
  Report Type: 
  Country: None (occurrence: None)
  Receive Date: 20080820
  Receipt Date: 20080808
  Transmission Date: 20090109
  Serious: Yes (Other)
  Sender: FDA-Public Use
  Company Number: IE-ELI_LILLY_AND_COMPANY-IE200808002431

PATIENT
  Sex: Male

DRUGS (2)
  1. GEMZAR [Suspect]
     Dosage: 1000 MG/M2,
     Route: 065
  2. GEMZAR [Suspect]
     Dosage: 750 MG/M2, OTHER
     Route: 065

REACTIONS (2)
  - CHEST PAIN [None]
  - NEUTROPHIL COUNT DECREASED [None]
